FAERS Safety Report 9414425 (Version 1)
Quarter: 2013Q3

REPORT INFORMATION
  Report Type: Spontaneous
  Country: CN (occurrence: CN)
  Receive Date: 20130723
  Receipt Date: 20130723
  Transmission Date: 20140515
  Serious: Yes (Hospitalization)
  Sender: FDA-Public Use
  Company Number: CN-GLAXOSMITHKLINE-B0849255A

PATIENT
  Age: 21 Year
  Sex: Female
  Weight: 65 kg

DRUGS (3)
  1. LAMICTAL [Suspect]
     Indication: EPILEPSY
     Route: 048
     Dates: start: 20121112, end: 20121123
  2. SODIUM VALPROATE [Concomitant]
     Indication: EPILEPSY
     Dosage: 1.2G PER DAY
     Route: 048
     Dates: start: 201211
  3. CARBAMAZEPINE [Concomitant]
     Indication: EPILEPSY
     Dosage: .2G PER DAY
     Route: 048
     Dates: start: 201211

REACTIONS (6)
  - Dermatitis bullous [Recovered/Resolved]
  - Convulsion [Recovered/Resolved]
  - Rash generalised [Recovered/Resolved]
  - Pyrexia [Recovered/Resolved]
  - Exfoliative rash [Recovered/Resolved]
  - Scar [Unknown]
